FAERS Safety Report 4678574-5 (Version None)
Quarter: 2005Q2

REPORT INFORMATION
  Report Type: 
  Country: None (occurrence: None)
  Receive Date: 20050601
  Receipt Date: 20050518
  Transmission Date: 20051028
  Serious: Yes (Hospitalization)
  Sender: FDA-Public Use
  Company Number: PHBS2005US07251

PATIENT
  Age: 22 Year
  Sex: Female

DRUGS (1)
  1. GLEEVEC [Suspect]
     Indication: HYPEREOSINOPHILIC SYNDROME
     Dosage: 400 MG, QD
     Route: 048

REACTIONS (15)
  - ANURIA [None]
  - BLOOD LACTATE DEHYDROGENASE INCREASED [None]
  - CARDIOMYOPATHY [None]
  - DIALYSIS [None]
  - HAEMOGLOBIN DECREASED [None]
  - HAPTOGLOBIN DECREASED [None]
  - MICROANGIOPATHIC HAEMOLYTIC ANAEMIA [None]
  - PLEURAL EFFUSION [None]
  - RED BLOOD CELL SCHISTOCYTES PRESENT [None]
  - RENAL FAILURE ACUTE [None]
  - RESPIRATORY FAILURE [None]
  - THROMBOCYTOPENIA [None]
  - THROMBOTIC MICROANGIOPATHY [None]
  - THROMBOTIC THROMBOCYTOPENIC PURPURA [None]
  - VON WILLEBRAND'S FACTOR MULTIMERS ABNORMAL [None]
